FAERS Safety Report 16741642 (Version 1)
Quarter: 2019Q3

REPORT INFORMATION
  Report Type: Spontaneous
  Country: US (occurrence: US)
  Receive Date: 20190826
  Receipt Date: 20190826
  Transmission Date: 20191005
  Serious: No
  Sender: FDA-Public Use
  Company Number: US-B.I. PHARMACEUTICALS,INC./RIDGEFIELD-2019-US-001510

PATIENT
  Sex: Female

DRUGS (2)
  1. PRADAXA [Suspect]
     Active Substance: DABIGATRAN ETEXILATE MESYLATE
     Indication: PRODUCT USED FOR UNKNOWN INDICATION
     Route: 065
     Dates: start: 20190514, end: 20190605
  2. PRADAXA [Suspect]
     Active Substance: DABIGATRAN ETEXILATE MESYLATE
     Route: 065
     Dates: start: 20190612, end: 20190618

REACTIONS (17)
  - Burning sensation [Unknown]
  - Skin burning sensation [Unknown]
  - Chest discomfort [Unknown]
  - Asthenia [Unknown]
  - Diarrhoea [Not Recovered/Not Resolved]
  - Depression [Recovered/Resolved]
  - Musculoskeletal chest pain [Unknown]
  - Abdominal distension [Unknown]
  - Somnolence [Unknown]
  - Headache [Not Recovered/Not Resolved]
  - Dyspnoea [Unknown]
  - Insomnia [Unknown]
  - Hepatic pain [Unknown]
  - Eye pain [Unknown]
  - Fatigue [Unknown]
  - Dyspepsia [Unknown]
  - Vision blurred [Unknown]

NARRATIVE: CASE EVENT DATE: 201905
